FAERS Safety Report 14693141 (Version 3)
Quarter: 2019Q1

REPORT INFORMATION
  Report Type: Spontaneous
  Country: US (occurrence: US)
  Receive Date: 20180329
  Receipt Date: 20190329
  Transmission Date: 20190417
  Serious: Yes (Other)
  Sender: FDA-Public Use
  Company Number: US-ASTRAZENECA-2018SE37217

PATIENT
  Age: 18650 Day
  Sex: Male
  Weight: 102.1 kg

DRUGS (23)
  1. CIALIS [Concomitant]
     Active Substance: TADALAFIL
  2. RESTORIL [Concomitant]
     Active Substance: TEMAZEPAM
  3. NEXIUM [Suspect]
     Active Substance: ESOMEPRAZOLE MAGNESIUM
     Indication: DYSPEPSIA
     Route: 048
     Dates: start: 20170506, end: 20170821
  4. PROAIR HFA [Concomitant]
     Active Substance: ALBUTEROL SULFATE
  5. MEDROL [Concomitant]
     Active Substance: METHYLPREDNISOLONE
  6. NORCO [Concomitant]
     Active Substance: ACETAMINOPHEN\HYDROCODONE BITARTRATE
  7. MORPHINE [Concomitant]
     Active Substance: MORPHINE
  8. COMPAZINE [Concomitant]
     Active Substance: PROCHLORPERAZINE MALEATE
  9. TEARISOL [Concomitant]
  10. NEXIUM [Suspect]
     Active Substance: ESOMEPRAZOLE MAGNESIUM
     Indication: DYSPEPSIA
     Route: 048
     Dates: start: 201502, end: 201708
  11. LIPITOR [Concomitant]
     Active Substance: ATORVASTATIN CALCIUM
  12. ATORVASTATIN [Concomitant]
     Active Substance: ATORVASTATIN
  13. ZITHROMAX [Concomitant]
     Active Substance: AZITHROMYCIN DIHYDRATE
  14. ZOFRAN [Concomitant]
     Active Substance: ONDANSETRON HYDROCHLORIDE
  15. DULCOLAX NOS [Concomitant]
     Active Substance: BISACODYL OR DOCUSATE SODIUM
  16. OMEPRAZOLE. [Suspect]
     Active Substance: OMEPRAZOLE
     Indication: DYSPEPSIA
     Dosage: GENERIC
     Route: 065
     Dates: start: 20160919, end: 20170506
  17. ASPIRIN. [Concomitant]
     Active Substance: ASPIRIN
  18. MELATONIN [Concomitant]
     Active Substance: MELATONIN
  19. LISINOPRIL. [Concomitant]
     Active Substance: LISINOPRIL
  20. NEXIUM 24HR [Suspect]
     Active Substance: ESOMEPRAZOLE MAGNESIUM
     Indication: DYSPEPSIA
     Route: 048
     Dates: start: 201502, end: 201708
  21. CEPACOL [Concomitant]
     Active Substance: BENZOCAINE
  22. ATENOLOL. [Concomitant]
     Active Substance: ATENOLOL
  23. PRINIVIL [Concomitant]
     Active Substance: LISINOPRIL

REACTIONS (3)
  - Acute kidney injury [Unknown]
  - Renal injury [Unknown]
  - Renal failure [Unknown]

NARRATIVE: CASE EVENT DATE: 20170723
